FAERS Safety Report 17037401 (Version 3)
Quarter: 2020Q2

REPORT INFORMATION
  Report Type: Spontaneous
  Country: US (occurrence: US)
  Receive Date: 20191115
  Receipt Date: 20200515
  Transmission Date: 20200713
  Serious: No
  Sender: FDA-Public Use
  Company Number: US-PFIZER INC-2019494495

PATIENT
  Age: 62 Year
  Sex: Female

DRUGS (3)
  1. IBRANCE [Suspect]
     Active Substance: PALBOCICLIB
     Dosage: 125 MG, DAILY
     Dates: start: 20191112
  2. IBRANCE [Suspect]
     Active Substance: PALBOCICLIB
     Dosage: 100 MG, CYCLIC (DAILY ON DAYS 1-21. TAKE WHOLE WITH WATER AND FOOD. AT APPROXIMATELY THE SAME TIME)
     Route: 048
     Dates: start: 20200213
  3. IBRANCE [Suspect]
     Active Substance: PALBOCICLIB
     Indication: BREAST CANCER
     Dosage: 125 MG, CYCLIC (DAILY ON DAYS 1-21. TAKE WHOLE WITH WATER AND FOOD. AT APPROXIMATELY THE SAME TIME)
     Route: 048
     Dates: start: 20190901

REACTIONS (2)
  - Chills [Unknown]
  - Diarrhoea [Unknown]
